FAERS Safety Report 9116691 (Version 1)
Quarter: 2013Q1

REPORT INFORMATION
  Report Type: Report from Study
  Country: US (occurrence: US)
  Receive Date: 20130225
  Receipt Date: 20130225
  Transmission Date: 20140127
  Serious: No
  Sender: FDA-Public Use
  Company Number: US-VERTEX PHARMACEUTICALS INC.-2013-002580

PATIENT
  Age: 59 Year
  Sex: Male
  Weight: 100 kg

DRUGS (5)
  1. VX-950 (TELAPREVIR) [Suspect]
     Indication: HEPATITIS C
     Dosage: 750 MG, TID
     Route: 048
  2. RIBASPHERE [Suspect]
     Indication: HEPATITIS C
     Dosage: 200 MG, UNK
  3. PEGINTRON [Suspect]
     Indication: HEPATITIS C
     Dosage: 180 RP, UNK
  4. VITAMIN D3 [Concomitant]
     Dosage: 2000 UT, UNK
  5. IBUPROFEN [Concomitant]
     Dosage: 200 MG, UNK

REACTIONS (2)
  - Blood count abnormal [Unknown]
  - Diarrhoea [Unknown]
